FAERS Safety Report 9827642 (Version 1)
Quarter: 2013Q4

REPORT INFORMATION
  Report Type: Spontaneous
  Country: US (occurrence: None)
  Receive Date: 20131120
  Receipt Date: 20131120
  Transmission Date: 20140711
  Serious: Yes (Other)
  Sender: FDA-Public Use
  Company Number: 1000046939

PATIENT
  Age: 34 Year
  Sex: Female

DRUGS (1)
  1. VIIBRYD [Suspect]
     Indication: DEPRESSION
     Dosage: 10 MG, (10 MG, 1 IN 1 D), ORAL
     Route: 048
     Dates: start: 201303, end: 2013

REACTIONS (1)
  - Pruritus generalised [None]
